FAERS Safety Report 10443712 (Version 1)
Quarter: 2014Q3

REPORT INFORMATION
  Report Type: Spontaneous
  Country: AU (occurrence: AU)
  Receive Date: 20140910
  Receipt Date: 20140910
  Transmission Date: 20150326
  Serious: Yes (Other)
  Sender: FDA-Public Use
  Company Number: PHHY2014AU108103

PATIENT
  Age: 43 Year
  Sex: Male

DRUGS (2)
  1. NEORAL [Suspect]
     Active Substance: CYCLOSPORINE
     Dosage: 100 MG, DAILY
  2. NEORAL [Suspect]
     Active Substance: CYCLOSPORINE
     Indication: PSORIASIS
     Dosage: 100 MG, BID
     Dates: start: 2014

REACTIONS (4)
  - Psoriasis [Unknown]
  - Drug intolerance [Unknown]
  - Myocardial infarction [Recovered/Resolved]
  - Angina pectoris [Recovered/Resolved]
